FAERS Safety Report 24050681 (Version 1)
Quarter: 2024Q3

REPORT INFORMATION
  Report Type: Spontaneous
  Country: IT (occurrence: IT)
  Receive Date: 20240704
  Receipt Date: 20240704
  Transmission Date: 20241016
  Serious: Yes (Death, Other)
  Sender: AMGEN
  Company Number: IT-AMGEN-ITASP2024127106

PATIENT

DRUGS (4)
  1. FILGRASTIM [Suspect]
     Active Substance: FILGRASTIM
     Indication: Prophylaxis
     Dosage: UNK
     Route: 065
  2. HERCEPTIN [Suspect]
     Active Substance: TRASTUZUMAB
     Indication: HER2 positive breast cancer
     Dosage: UNK
     Route: 065
  3. PERTUZUMAB [Suspect]
     Active Substance: PERTUZUMAB
     Indication: HER2 positive breast cancer
     Dosage: 840 MILLIGRAM, Q3WK
     Route: 065
  4. PERTUZUMAB [Suspect]
     Active Substance: PERTUZUMAB
     Dosage: 420 MILLIGRAM, Q3WK
     Route: 065

REACTIONS (21)
  - Death [Fatal]
  - HER2 positive breast cancer [Unknown]
  - Neutropenia [Unknown]
  - Neurotoxicity [Unknown]
  - Transaminases increased [Unknown]
  - Mucosal inflammation [Unknown]
  - Diarrhoea [Unknown]
  - Anaemia [Unknown]
  - Nausea [Unknown]
  - Asthenia [Unknown]
  - Urinary tract infection [Unknown]
  - Ejection fraction decreased [Unknown]
  - Dysgeusia [Unknown]
  - Abdominal pain [Unknown]
  - Nail dystrophy [Unknown]
  - Eye disorder [Unknown]
  - Haemorrhoids [Unknown]
  - Vomiting [Unknown]
  - Rash [Unknown]
  - Myalgia [Unknown]
  - Drug hypersensitivity [Unknown]
